FAERS Safety Report 10476506 (Version 1)
Quarter: 2014Q3

REPORT INFORMATION
  Report Type: Spontaneous
  Country: JP (occurrence: JP)
  Receive Date: 20140925
  Receipt Date: 20140925
  Transmission Date: 20150326
  Serious: Yes (Hospitalization)
  Sender: FDA-Public Use
  Company Number: JP-GLAXOSMITHKLINE-B1036348A

PATIENT
  Age: 86 Year
  Sex: Female

DRUGS (1)
  1. VALTREX [Suspect]
     Active Substance: VALACYCLOVIR HYDROCHLORIDE
     Indication: HERPES ZOSTER
     Route: 048

REACTIONS (6)
  - Toxic encephalopathy [Recovering/Resolving]
  - Blood creatinine abnormal [Recovering/Resolving]
  - Anuria [Recovering/Resolving]
  - Feeling abnormal [Unknown]
  - Altered state of consciousness [Recovering/Resolving]
  - Decreased appetite [Unknown]
